FAERS Safety Report 5776103-6 (Version None)
Quarter: 2008Q2

REPORT INFORMATION
  Report Type: 
  Country: None (occurrence: None)
  Receive Date: 20080617
  Receipt Date: 20080612
  Transmission Date: 20081010
  Serious: Yes (Hospitalization, Other)
  Sender: FDA-Public Use
  Company Number: JP-GENENTECH-258800

PATIENT
  Age: 87 Year
  Sex: Female

DRUGS (11)
  1. ALTEPLASE [Suspect]
     Indication: EMBOLIC STROKE
     Dosage: 0.6 MG/KG, UNK
     Route: 042
     Dates: start: 20070830
  2. RADICUT [Concomitant]
     Indication: DRUG USE FOR UNKNOWN INDICATION
     Dosage: 60 MG, UNK
     Route: 041
     Dates: start: 20070830, end: 20070911
  3. SODIUM CHLORIDE [Concomitant]
     Indication: DRUG USE FOR UNKNOWN INDICATION
     Dosage: 200 ML, UNK
     Route: 041
     Dates: start: 20070830, end: 20070911
  4. VEEN-D [Concomitant]
     Indication: DRUG USE FOR UNKNOWN INDICATION
     Dosage: 1000 ML, UNK
     Route: 041
     Dates: start: 20070830, end: 20070904
  5. VEEN-D [Concomitant]
     Dosage: 500 ML, UNK
     Route: 041
     Dates: start: 20070905, end: 20070906
  6. FAMOTIDINE [Concomitant]
     Indication: DRUG USE FOR UNKNOWN INDICATION
     Dosage: 20 MG, UNK
     Route: 041
     Dates: start: 20070830, end: 20070906
  7. AMINO ACIDS/MULTIVITAMINS NOS [Concomitant]
     Indication: DRUG USE FOR UNKNOWN INDICATION
     Dosage: 500 ML, UNK
     Route: 041
     Dates: start: 20070831, end: 20070906
  8. ELECTROLYTE SOLUTION W CARBOHYDRATES NOS [Concomitant]
     Indication: DRUG USE FOR UNKNOWN INDICATION
     Dosage: 500 ML, UNK
     Route: 041
     Dates: start: 20070831, end: 20070906
  9. SOLDEM [Concomitant]
     Indication: DRUG USE FOR UNKNOWN INDICATION
     Dosage: 500 ML, UNK
     Route: 041
     Dates: start: 20070905, end: 20070905
  10. LAXOBERON [Concomitant]
     Indication: DRUG USE FOR UNKNOWN INDICATION
     Dosage: 10 GTT, UNK
     Route: 048
     Dates: start: 20070911
  11. ASPIRIN [Concomitant]
     Indication: DRUG USE FOR UNKNOWN INDICATION
     Dosage: 100 MG, UNK
     Route: 048
     Dates: start: 20070912

REACTIONS (3)
  - ANAEMIA [None]
  - HAEMATOMA [None]
  - SHOCK HAEMORRHAGIC [None]
